FAERS Safety Report 15780692 (Version 5)
Quarter: 2019Q2

REPORT INFORMATION
  Report Type: Spontaneous
  Country: US (occurrence: US)
  Receive Date: 20190102
  Receipt Date: 20190627
  Transmission Date: 20190711
  Serious: Yes (Other)
  Sender: FDA-Public Use
  Company Number: US-BEH-2018098015

PATIENT
  Age: 24 Year
  Sex: Male

DRUGS (6)
  1. IDELVION [Suspect]
     Active Substance: COAGULATION FACTOR IX RECOMBINANT HUMAN
     Indication: HAEMOPHILIA
     Dosage: 3000-3500 IU QW AND REPEAT 48-72 HRS PRN
     Route: 042
  2. IDELVION [Suspect]
     Active Substance: COAGULATION FACTOR IX RECOMBINANT HUMAN
     Indication: HAEMOPHILIA
     Dosage: 3000-3500 IU QW AND REPEAT 48-72 HRS PRN
     Route: 042
  3. IDELVION [Suspect]
     Active Substance: COAGULATION FACTOR IX RECOMBINANT HUMAN
     Dosage: 3500 INTERNATIONAL UNIT
     Route: 042
     Dates: start: 20180222
  4. IDELVION [Suspect]
     Active Substance: COAGULATION FACTOR IX RECOMBINANT HUMAN
     Dosage: 3500 INTERNATIONAL UNIT
     Route: 042
     Dates: start: 20180222
  5. IDELVION [Suspect]
     Active Substance: COAGULATION FACTOR IX RECOMBINANT HUMAN
     Indication: FACTOR IX DEFICIENCY
     Dosage: 3000 IU, QW
     Route: 042
     Dates: start: 20181220
  6. IDELVION [Suspect]
     Active Substance: COAGULATION FACTOR IX RECOMBINANT HUMAN
     Indication: FACTOR IX DEFICIENCY
     Dosage: 3000 IU, QW
     Route: 042
     Dates: start: 20181220

REACTIONS (4)
  - Haemorrhage [Unknown]
  - Haemarthrosis [Unknown]
  - Haemarthrosis [Recovering/Resolving]
  - Haemarthrosis [Unknown]

NARRATIVE: CASE EVENT DATE: 201812
